FAERS Safety Report 12494184 (Version 1)
Quarter: 2016Q2

REPORT INFORMATION
  Report Type: Report from Study
  Country: KR (occurrence: KR)
  Receive Date: 20160623
  Receipt Date: 20160623
  Transmission Date: 20160815
  Serious: No
  Sender: FDA-Public Use
  Company Number: PHHY2016KR085721

PATIENT
  Age: 39 Year
  Sex: Female

DRUGS (7)
  1. TASIGNA [Suspect]
     Active Substance: NILOTINIB
     Indication: CHRONIC MYELOID LEUKAEMIA
     Dosage: 600 MG, QD
     Route: 048
     Dates: start: 20160127
  2. TRISONEKIT [Concomitant]
     Indication: PYREXIA
     Dosage: 2 G, UNK
     Route: 042
     Dates: start: 20160126, end: 20160201
  3. ZYLORIC [Concomitant]
     Active Substance: ALLOPURINOL
     Indication: PROPHYLAXIS
     Dosage: 300 MG, UNK
     Route: 048
     Dates: start: 20160122, end: 20160303
  4. MULEX [Concomitant]
     Indication: HEADACHE
     Dosage: 100 MG, UNK
     Route: 048
     Dates: start: 20160212, end: 20160303
  5. XANAX [Concomitant]
     Active Substance: ALPRAZOLAM
     Indication: DIZZINESS
     Dosage: 0.5 MG, UNK
     Route: 048
     Dates: start: 20160304, end: 20160310
  6. ARLEVERT [Concomitant]
     Active Substance: CINNARIZINE\DIMENHYDRINATE
     Indication: DIZZINESS
     Dosage: 2 OT (TAB), UNK
     Route: 048
     Dates: start: 20160304, end: 20160310
  7. TYLENOL ER [Concomitant]
     Active Substance: ACETAMINOPHEN
     Indication: HEADACHE
     Dosage: 1300 MG, UNK
     Route: 048
     Dates: start: 20160126, end: 20160130

REACTIONS (1)
  - Hypothyroidism [Not Recovered/Not Resolved]

NARRATIVE: CASE EVENT DATE: 20160201
